FAERS Safety Report 10267757 (Version 2)
Quarter: 2014Q2

REPORT INFORMATION
  Report Type: Spontaneous
  Country: JP (occurrence: JP)
  Receive Date: 20140630
  Receipt Date: 20140630
  Transmission Date: 20141212
  Serious: Yes (Death)
  Sender: FDA-Public Use
  Company Number: JP-BAYER-2011-123106

PATIENT
  Age: 71 Year
  Sex: Male

DRUGS (1)
  1. NEXAVAR [Suspect]
     Indication: HEPATOCELLULAR CARCINOMA
     Dosage: 400 MG, BID
     Route: 048
     Dates: start: 20111124

REACTIONS (3)
  - Hepatocellular carcinoma [Fatal]
  - Diarrhoea [Recovering/Resolving]
  - Hypertension [Recovered/Resolved]
